FAERS Safety Report 16232711 (Version 1)
Quarter: 2019Q2

REPORT INFORMATION
  Report Type: Spontaneous
  Country: US (occurrence: US)
  Receive Date: 20190423
  Receipt Date: 20190423
  Transmission Date: 20190711
  Serious: Yes (Hospitalization)
  Sender: FDA-Public Use
  Company Number: None

PATIENT
  Age: 45 Year
  Sex: Male

DRUGS (12)
  1. MEKINIST [Suspect]
     Active Substance: TRAMETINIB DIMETHYL SULFOXIDE
     Indication: NEOPLASM MALIGNANT
     Route: 048
     Dates: start: 20180921
  2. VITAMIN C,D [Concomitant]
  3. MULTIVITAMINS [Concomitant]
     Active Substance: VITAMINS
  4. YERVOY [Concomitant]
     Active Substance: IPILIMUMAB
  5. TAFINLAR [Suspect]
     Active Substance: DABRAFENIB MESYLATE
     Indication: NEOPLASM MALIGNANT
     Route: 048
     Dates: start: 20180920
  6. TUMERIC [Concomitant]
     Active Substance: HERBALS\TURMERIC
  7. MIRTAZAPINE. [Concomitant]
     Active Substance: MIRTAZAPINE
  8. SM LOPERAMIDE [Concomitant]
  9. LORAZEPAM. [Concomitant]
     Active Substance: LORAZEPAM
  10. SIMETHICONE (DIMETHICONE) [Concomitant]
     Active Substance: DIMETHICONE
  11. ONDANSETRON [Concomitant]
     Active Substance: ONDANSETRON
  12. TYLENOL [Concomitant]
     Active Substance: ACETAMINOPHEN

REACTIONS (3)
  - Dyspepsia [None]
  - Oesophageal disorder [None]
  - Haematemesis [None]

NARRATIVE: CASE EVENT DATE: 20190301
